FAERS Safety Report 23665479 (Version 1)
Quarter: 2024Q1

REPORT INFORMATION
  Report Type: Report from Study
  Country: GR (occurrence: GR)
  Receive Date: 20240323
  Receipt Date: 20240323
  Transmission Date: 20240410
  Serious: Yes (Other)
  Sender: FDA-Public Use
  Company Number: GR-CELLTRION INC.-2023GR017343

PATIENT

DRUGS (4)
  1. INFLIXIMAB [Suspect]
     Active Substance: INFLIXIMAB
     Indication: Rheumatoid arthritis
     Dosage: 500 MG/UNKNOWN SCHEME (5X100MG REMSIMA INFUSION); EVERY 8 WEEKS
     Route: 041
     Dates: start: 20210809
  2. INFLIXIMAB [Suspect]
     Active Substance: INFLIXIMAB
     Dosage: 500 MG/UNKNOWN SCHEME (5X100MG REMSIMA INFUSION); EVERY 8 WEEKS
     Route: 041
     Dates: start: 20230830
  3. INFLIXIMAB [Suspect]
     Active Substance: INFLIXIMAB
     Dosage: 500 MG EVERY 8 WEEKS
     Route: 041
     Dates: start: 20231218
  4. INFLIXIMAB [Suspect]
     Active Substance: INFLIXIMAB
     Dosage: 500 MG EVERY 8 WEEKS
     Route: 041
     Dates: start: 20240306

REACTIONS (3)
  - Rheumatoid arthritis [Unknown]
  - Treatment delayed [Unknown]
  - Overdose [Unknown]
